FAERS Safety Report 5476560-9 (Version None)
Quarter: 2007Q3

REPORT INFORMATION
  Report Type: 
  Country: None (occurrence: None)
  Receive Date: 20070927
  Receipt Date: 20061113
  Transmission Date: 20080115
  Serious: Yes (Hospitalization)
  Sender: FDA-Public Use
  Company Number: FABR-11736

PATIENT
  Age: 17 Year
  Sex: Male
  Weight: 55 kg

DRUGS (8)
  1. FABRAZYME [Suspect]
     Indication: FABRY'S DISEASE
     Dosage: 55 MG Q2WKS IV
     Route: 042
     Dates: start: 20030918
  2. MORPHINE [Suspect]
     Indication: FABRY'S DISEASE
  3. SOLU-MEDROL [Concomitant]
  4. BENADRYL [Concomitant]
  5. CLARITIN [Concomitant]
  6. ZOFRAN [Concomitant]
  7. GABAPENTIN [Concomitant]
  8. FABRAZYME [Suspect]

REACTIONS (4)
  - HYPOTENSION [None]
  - NAUSEA [None]
  - PAIN [None]
  - PYREXIA [None]
